FAERS Safety Report 11548206 (Version 1)
Quarter: 2015Q3

REPORT INFORMATION
  Report Type: Spontaneous
  Country: US (occurrence: US)
  Receive Date: 20150903
  Receipt Date: 20150903
  Transmission Date: 20151125
  Serious: No
  Sender: FDA-Public Use
  Company Number: US-ELI_LILLY_AND_COMPANY-US201110004133

PATIENT
  Sex: Male

DRUGS (3)
  1. HUMALOG [Suspect]
     Active Substance: INSULIN LISPRO
     Indication: TYPE 1 DIABETES MELLITUS
     Dosage: UNK UNK, PRN
     Route: 065
     Dates: start: 1983
  2. LANTUS [Concomitant]
     Active Substance: INSULIN GLARGINE
     Indication: TYPE 1 DIABETES MELLITUS
     Dosage: UNK
  3. HUMALOG [Suspect]
     Active Substance: INSULIN LISPRO
     Indication: TYPE 1 DIABETES MELLITUS
     Dosage: UNK, UNKNOWN
     Route: 065
     Dates: start: 201206

REACTIONS (31)
  - Renal disorder [Unknown]
  - Fatigue [Unknown]
  - Insomnia [Unknown]
  - Abdominal discomfort [Unknown]
  - Hypertension [Unknown]
  - Blood glucose abnormal [Unknown]
  - Visual impairment [Unknown]
  - Cataract [Unknown]
  - Hypersomnia [Unknown]
  - Arthralgia [Unknown]
  - Back pain [Unknown]
  - Myalgia [Unknown]
  - Paraesthesia [Unknown]
  - Dizziness [Unknown]
  - Burning sensation [Unknown]
  - Faeces hard [Unknown]
  - Blood glucose increased [Unknown]
  - Peripheral swelling [Unknown]
  - Blood sodium decreased [Unknown]
  - Unevaluable event [Unknown]
  - Neuropathy peripheral [Unknown]
  - Hyperhidrosis [Unknown]
  - Anxiety [Unknown]
  - Pruritus [Unknown]
  - Pain in extremity [Unknown]
  - Chest pain [Unknown]
  - Blood creatinine increased [Recovering/Resolving]
  - Insulin resistant diabetes [Unknown]
  - Blood albumin decreased [Unknown]
  - Angina pectoris [Unknown]
  - Drug dose omission [Unknown]

NARRATIVE: CASE EVENT DATE: 2008
